FAERS Safety Report 13609068 (Version 3)
Quarter: 2017Q3

REPORT INFORMATION
  Report Type: Spontaneous
  Country: KR (occurrence: KR)
  Receive Date: 20170602
  Receipt Date: 20170727
  Transmission Date: 20171127
  Serious: Yes (Other)
  Sender: FDA-Public Use
  Company Number: KR-009507513-1706KOR000373

PATIENT
  Age: 44 Year
  Sex: Female
  Weight: 66.1 kg

DRUGS (12)
  1. CANCIDAS [Concomitant]
     Active Substance: CASPOFUNGIN ACETATE
     Indication: INFECTION PROPHYLAXIS
     Dosage: 70 MG, QD
     Route: 042
     Dates: start: 20160824, end: 20160911
  2. KYTRIL [Concomitant]
     Active Substance: GRANISETRON HYDROCHLORIDE
     Indication: PROPHYLAXIS OF NAUSEA AND VOMITING
     Dosage: 1 TABLET, QD
     Route: 048
     Dates: start: 20160819, end: 20160821
  3. KYTRIL [Concomitant]
     Active Substance: GRANISETRON HYDROCHLORIDE
     Indication: PROPHYLAXIS OF NAUSEA AND VOMITING
     Dosage: 3 MG, QD
     Route: 042
     Dates: start: 20160816, end: 20160818
  4. ONSETRON [Concomitant]
     Active Substance: ONDANSETRON
     Indication: PROPHYLAXIS OF NAUSEA AND VOMITING
     Dosage: 1 VIAL, ONCE
     Route: 042
     Dates: start: 20160820, end: 20160820
  5. NOXAFIL [Concomitant]
     Active Substance: POSACONAZOLE
     Indication: INFECTION PROPHYLAXIS
     Dosage: 200 MG, TID
     Route: 048
     Dates: start: 20160816, end: 20160820
  6. PACETA [Concomitant]
     Indication: PAIN PROPHYLAXIS
     Dosage: 0.5 G, QD
     Route: 042
     Dates: start: 20160820, end: 20160911
  7. ZAVEDOS [Concomitant]
     Active Substance: IDARUBICIN
     Indication: ACUTE MYELOID LEUKAEMIA
     Dosage: 20 MG, QD, CYCLE 1
     Route: 042
     Dates: start: 20160816, end: 20160818
  8. MECKOOL [Concomitant]
     Indication: PROPHYLAXIS OF NAUSEA AND VOMITING
     Dosage: 1 AMP, ONCE
     Route: 042
     Dates: start: 20160820, end: 20160820
  9. EMEND (FOSAPREPITANT DIMEGLUMINE) [Suspect]
     Active Substance: FOSAPREPITANT DIMEGLUMINE
     Indication: PROPHYLAXIS OF NAUSEA AND VOMITING
     Dosage: 150 MG, ONCE
     Route: 042
     Dates: start: 20160820, end: 20160820
  10. MEBAPENEM [Concomitant]
     Indication: INFECTION PROPHYLAXIS
     Dosage: 1 G, QD
     Route: 042
     Dates: start: 20160816, end: 20160822
  11. CYTARABINE. [Concomitant]
     Active Substance: CYTARABINE
     Indication: ACUTE MYELOID LEUKAEMIA
     Dosage: 170 MG, QD, CYCLE 1
     Route: 042
     Dates: start: 20160816, end: 20160822
  12. AMBISOME [Concomitant]
     Active Substance: AMPHOTERICIN B
     Indication: INFECTION PROPHYLAXIS
     Dosage: 200 MG, QD
     Route: 042
     Dates: start: 20160820, end: 20160922

REACTIONS (1)
  - Pneumonia [Recovered/Resolved]

NARRATIVE: CASE EVENT DATE: 20160830
